FAERS Safety Report 5868658-8 (Version None)
Quarter: 2008Q3

REPORT INFORMATION
  Report Type: 
  Country: None (occurrence: None)
  Receive Date: 20080903
  Receipt Date: 20080826
  Transmission Date: 20090109
  Serious: Yes (Other)
  Sender: FDA-Public Use
  Company Number: US-ASTRAZENECA-2008UW17514

PATIENT
  Age: 79 Year
  Sex: Female
  Weight: 74.4 kg

DRUGS (6)
  1. ARIMIDEX [Suspect]
     Indication: BREAST CANCER
     Route: 048
     Dates: start: 20040101, end: 20070101
  2. ARIMIDEX [Suspect]
     Route: 048
     Dates: start: 20070101
  3. CELEBREX [Concomitant]
  4. GABAPENTIN [Concomitant]
  5. TOPROL-XL [Concomitant]
     Route: 048
  6. LASIX [Concomitant]

REACTIONS (3)
  - ARTHRITIS [None]
  - HOT FLUSH [None]
  - KNEE ARTHROPLASTY [None]
